FAERS Safety Report 11002509 (Version 1)
Quarter: 2015Q2

REPORT INFORMATION
  Report Type: Spontaneous
  Country: JP (occurrence: JP)
  Receive Date: 20150408
  Receipt Date: 20150408
  Transmission Date: 20150821
  Serious: Yes (Life-Threatening)
  Sender: FDA-Public Use
  Company Number: JP-GLAXOSMITHKLINE-JP2015JPN045204

PATIENT
  Age: 67 Year
  Sex: Female

DRUGS (7)
  1. MAGMITT [Concomitant]
     Active Substance: MAGNESIUM OXIDE
     Dosage: UNK
  2. ARTIST [Concomitant]
     Active Substance: CARVEDILOL
     Dosage: UNK
  3. VOTRIENT [Suspect]
     Active Substance: PAZOPANIB HYDROCHLORIDE
     Indication: LEIOMYOSARCOMA
     Dosage: 800 MG, 1D
     Route: 048
     Dates: start: 20130521, end: 20130607
  4. TAKEPRON [Concomitant]
     Active Substance: LANSOPRAZOLE
     Dosage: UNK
  5. PURSENNID [Concomitant]
     Active Substance: SENNOSIDES A AND B
     Dosage: 12 MG, 1D
     Route: 048
     Dates: start: 20121228
  6. WARFARIN [Suspect]
     Active Substance: WARFARIN
     Dosage: 2.5 MG, 1D
     Route: 048
     Dates: start: 20121228, end: 20130605
  7. GANATON [Concomitant]
     Active Substance: ITOPRIDE
     Dosage: UNK

REACTIONS (2)
  - Platelet count decreased [Recovered/Resolved]
  - International normalised ratio increased [Recovered/Resolved]

NARRATIVE: CASE EVENT DATE: 20130521
